FAERS Safety Report 5454591-2 (Version None)
Quarter: 2007Q3

REPORT INFORMATION
  Report Type: 
  Country: None (occurrence: None)
  Receive Date: 20070917
  Receipt Date: 20070911
  Transmission Date: 20080115
  Serious: Yes (Death, Hospitalization)
  Sender: FDA-Public Use
  Company Number: PHHO2007VE01452

PATIENT
  Age: 77 Year
  Sex: Male

DRUGS (2)
  1. ZELNORM [Suspect]
     Indication: IRRITABLE BOWEL SYNDROME
     Dosage: 6 MG, BID
     Route: 048
     Dates: start: 20060501, end: 20060601
  2. ENALAPRIL MALEATE [Concomitant]
     Indication: HYPERTENSION

REACTIONS (4)
  - CEREBROVASCULAR ACCIDENT [None]
  - DEPRESSED MOOD [None]
  - GENERAL PHYSICAL HEALTH DETERIORATION [None]
  - PULMONARY OEDEMA [None]
